FAERS Safety Report 5089808-X (Version None)
Quarter: 2006Q3

REPORT INFORMATION
  Report Type: 
  Country: None (occurrence: None)
  Receive Date: 20060828
  Receipt Date: 20060626
  Transmission Date: 20061208
  Serious: Yes (Other)
  Sender: FDA-Public Use
  Company Number: PHHO2006NZ10469

PATIENT
  Age: 42 Year
  Sex: Female

DRUGS (1)
  1. CLOZARIL [Suspect]
     Indication: SCHIZOPHRENIA
     Dosage: 400 MG, QD
     Route: 048
     Dates: start: 20060409, end: 20060806

REACTIONS (4)
  - AGITATION [None]
  - ARTHRALGIA [None]
  - DYSPNOEA [None]
  - SALIVARY HYPERSECRETION [None]
